FAERS Safety Report 23782674 (Version 1)
Quarter: 2024Q2

REPORT INFORMATION
  Report Type: Spontaneous
  Country: US (occurrence: US)
  Receive Date: 20240425
  Receipt Date: 20240425
  Transmission Date: 20240716
  Serious: Yes (Hospitalization)
  Sender: FDA-Public Use
  Company Number: US-ABBVIE-5733000

PATIENT
  Sex: Female

DRUGS (2)
  1. LINZESS [Suspect]
     Active Substance: LINACLOTIDE
     Indication: Irritable bowel syndrome
     Dosage: FORM STRENGTH- 145 MICROGRAM, FREQUENCY TEXT: TAKEN IN THE MORNING
     Route: 048
  2. SENOKOT [Concomitant]
     Active Substance: SENNOSIDES
     Indication: Product used for unknown indication

REACTIONS (7)
  - Otolithiasis [Unknown]
  - Therapeutic product effect incomplete [Unknown]
  - Dehydration [Unknown]
  - Tinnitus [Unknown]
  - Dizziness [Unknown]
  - Diarrhoea [Unknown]
  - Unevaluable event [Unknown]
